FAERS Safety Report 9067555 (Version 2)
Quarter: 2013Q2

REPORT INFORMATION
  Report Type: Spontaneous
  Country: US (occurrence: US)
  Receive Date: 20130214
  Receipt Date: 20130423
  Transmission Date: 20140414
  Serious: Yes (Death, Hospitalization)
  Sender: FDA-Public Use
  Company Number: US-B.I. PHARMACEUTICALS,INC./RIDGEFIELD-2013-BI-03935BP

PATIENT
  Age: 82 Year
  Sex: Female
  Weight: 79.3 kg

DRUGS (12)
  1. PRADAXA [Suspect]
     Indication: ANTICOAGULANT THERAPY
     Dosage: 300 MG
     Route: 048
     Dates: start: 20110127, end: 20120211
  2. PRADAXA [Suspect]
     Indication: CEREBROVASCULAR ACCIDENT PROPHYLAXIS
  3. PRADAXA [Suspect]
     Indication: ATRIAL FIBRILLATION
  4. ISOSORBIDE DINITRATE [Concomitant]
     Dosage: 30 MG
     Route: 060
  5. DONEPEZIL HCL [Concomitant]
     Dosage: 5 MG
     Route: 048
  6. SYNTHROID [Concomitant]
     Dosage: 50 MCG
     Route: 048
  7. NEURONTIN [Concomitant]
     Route: 048
  8. FUROSEMIDE [Concomitant]
     Dosage: 40 MG
     Route: 048
  9. PRAVASTATIN SODIUM [Concomitant]
     Dosage: 40 MG
     Route: 048
  10. LUNESTA [Concomitant]
     Route: 048
  11. CARVEDILOL [Concomitant]
     Dosage: 50 MG
     Route: 048
  12. ALLOPURINOL [Concomitant]
     Dosage: 300 MG
     Route: 048

REACTIONS (1)
  - Cerebral haemorrhage [Fatal]
